FAERS Safety Report 6724135-3 (Version None)
Quarter: 2010Q2

REPORT INFORMATION
  Report Type: 
  Country: None (occurrence: None)
  Receive Date: 20100513
  Receipt Date: 20100504
  Transmission Date: 20101027
  Serious: Yes (Other)
  Sender: FDA-Public Use
  Company Number: CA-AMGEN-QUU410328

PATIENT

DRUGS (1)
  1. ENBREL [Suspect]
     Indication: DRUG USE FOR UNKNOWN INDICATION

REACTIONS (2)
  - GUILLAIN-BARRE SYNDROME [None]
  - NEUROLOGICAL SYMPTOM [None]
